FAERS Safety Report 15880674 (Version 2)
Quarter: 2019Q1

REPORT INFORMATION
  Report Type: Report from Study
  Country: US (occurrence: US)
  Receive Date: 20190128
  Receipt Date: 20190327
  Transmission Date: 20190417
  Serious: Yes (Other)
  Sender: FDA-Public Use
  Company Number: US-JNJFOC-20190134382

PATIENT
  Age: 3 Year
  Sex: Female
  Weight: 14 kg

DRUGS (11)
  1. NORMAL SALINE [Concomitant]
     Active Substance: SODIUM CHLORIDE
     Indication: ILEOSTOMY
     Route: 065
     Dates: start: 20170619, end: 20170629
  2. FURADANTIN [Concomitant]
     Active Substance: NITROFURANTOIN
     Indication: NEUROGENIC BLADDER
     Dosage: GASTROSTOMY TUBE
     Route: 065
     Dates: start: 20170627
  3. CISAPRIDE [Suspect]
     Active Substance: CISAPRIDE
     Indication: GASTROOESOPHAGEAL REFLUX DISEASE
     Route: 048
     Dates: start: 20190128
  4. VANCOMYCIN HCL [Concomitant]
     Active Substance: VANCOMYCIN HYDROCHLORIDE
     Indication: VASCULAR DEVICE INFECTION
     Dosage: INTO CATHETER. LOCK THERAPY
     Route: 065
     Dates: start: 20170619, end: 20170629
  5. TYLENOL [Concomitant]
     Active Substance: ACETAMINOPHEN
     Route: 065
  6. HEPARIN [Concomitant]
     Active Substance: HEPARIN SODIUM
     Route: 065
  7. IRON [Concomitant]
     Active Substance: IRON
     Route: 065
  8. METRONIDAZOLE. [Concomitant]
     Active Substance: METRONIDAZOLE
     Route: 065
  9. CISAPRIDE [Suspect]
     Active Substance: CISAPRIDE
     Indication: GASTROOESOPHAGEAL REFLUX DISEASE
     Route: 048
     Dates: start: 20170717, end: 20190123
  10. AUGMENTIN [Concomitant]
     Active Substance: AMOXICILLIN\CLAVULANATE POTASSIUM
     Indication: OVERGROWTH BACTERIAL
     Dosage: FOR 7 DAYS
     Route: 065
     Dates: start: 20170619, end: 20170629
  11. TAMIFLU [Concomitant]
     Active Substance: OSELTAMIVIR PHOSPHATE
     Indication: INFLUENZA
     Dosage: GASTROSTOMY TUBE
     Route: 065
     Dates: start: 20180107, end: 20180112

REACTIONS (1)
  - Electrocardiogram QT prolonged [Recovered/Resolved]

NARRATIVE: CASE EVENT DATE: 20190122
